FAERS Safety Report 9548607 (Version 1)
Quarter: 2013Q3

REPORT INFORMATION
  Report Type: Spontaneous
  Country: US (occurrence: None)
  Receive Date: 20130923
  Receipt Date: 20130923
  Transmission Date: 20140515
  Serious: Yes (Life-Threatening, Hospitalization, Disabling)
  Sender: FDA-Public Use
  Company Number: None

PATIENT
  Age: 21 Year
  Sex: Female
  Weight: 57.61 kg

DRUGS (1)
  1. CLARAVIS [Suspect]
     Indication: ACNE
     Dosage: ONCE DAILY TAKEN BY MOUTH
     Dates: start: 20120915, end: 20121228

REACTIONS (9)
  - Arthralgia [None]
  - Fall [None]
  - Sinusitis [None]
  - Deafness [None]
  - Joint swelling [None]
  - Skin lesion [None]
  - Mouth ulceration [None]
  - Tachycardia [None]
  - Lung infiltration [None]
